FAERS Safety Report 6997408-7 (Version None)
Quarter: 2010Q3

REPORT INFORMATION
  Report Type: 
  Country: None (occurrence: None)
  Receive Date: 20100918
  Receipt Date: 20091013
  Transmission Date: 20110219
  Serious: No
  Sender: FDA-Public Use
  Company Number: US-WYE-H11578109

PATIENT
  Sex: Female
  Weight: 64.47 kg

DRUGS (10)
  1. PRISTIQ [Suspect]
     Indication: DEPRESSION
     Route: 048
     Dates: start: 20091006
  2. CRESTOR [Concomitant]
  3. COENZYME Q10 [Concomitant]
  4. AMBIEN [Concomitant]
  5. CELEXA [Concomitant]
  6. VITAMIN D [Concomitant]
  7. CITRACAL [Concomitant]
  8. CENTRUM SILVER [Concomitant]
  9. PLAVIX [Concomitant]
  10. ACETYLSALICYLIC ACID [Concomitant]

REACTIONS (4)
  - APATHY [None]
  - ASTHENIA [None]
  - BLOOD PRESSURE INCREASED [None]
  - FATIGUE [None]
